FAERS Safety Report 18945159 (Version 1)
Quarter: 2021Q1

REPORT INFORMATION
  Report Type: Spontaneous
  Country: US (occurrence: US)
  Receive Date: 20210226
  Receipt Date: 20210226
  Transmission Date: 20210420
  Serious: Yes (Hospitalization)
  Sender: FDA-Public Use
  Company Number: US-GW PHARMA-202102USGW00635

PATIENT

DRUGS (1)
  1. EPIDIOLEX [Suspect]
     Active Substance: CANNABIDIOL
     Indication: EPILEPSY
     Dosage: 24.21 MG/KG/DAY, 280 MILLIGRAM, BID
     Dates: start: 20190813

REACTIONS (2)
  - Prescribed overdose [Unknown]
  - Pancreatitis [Recovered/Resolved]

NARRATIVE: CASE EVENT DATE: 20210209
